FAERS Safety Report 11500929 (Version 1)
Quarter: 2015Q3

REPORT INFORMATION
  Report Type: Spontaneous
  Country: US (occurrence: US)
  Receive Date: 20150903
  Receipt Date: 20150903
  Transmission Date: 20151125
  Serious: No
  Sender: FDA-Public Use
  Company Number: US-ELI_LILLY_AND_COMPANY-US200901000666

PATIENT
  Sex: Male

DRUGS (3)
  1. HUMALOG [Suspect]
     Active Substance: INSULIN LISPRO
     Dosage: 40 U, 3/D
  2. LANTUS [Concomitant]
     Active Substance: INSULIN GLARGINE
     Indication: TYPE 2 DIABETES MELLITUS
     Dosage: 85 U, EACH EVENING
  3. HUMALOG [Suspect]
     Active Substance: INSULIN LISPRO
     Dosage: 35 U, 3/D

REACTIONS (4)
  - Blood glucose abnormal [Not Recovered/Not Resolved]
  - Injection site nodule [Not Recovered/Not Resolved]
  - Blood glucose increased [Unknown]
  - Injection site pain [Unknown]

NARRATIVE: CASE EVENT DATE: 20080106
